FAERS Safety Report 18321062 (Version 1)
Quarter: 2020Q3

REPORT INFORMATION
  Report Type: Spontaneous
  Country: DE (occurrence: DE)
  Receive Date: 20200929
  Receipt Date: 20200929
  Transmission Date: 20201103
  Serious: Yes (Hospitalization)
  Sender: FDA-Public Use
  Company Number: DE-TEVA-2020-DE-1831536

PATIENT
  Age: 83 Year
  Sex: Male
  Weight: 60 kg

DRUGS (9)
  1. LOPERAMID [Concomitant]
     Active Substance: LOPERAMIDE
     Dosage: 2 MG, IF NECESSARY
  2. CANDESARTAN. [Concomitant]
     Active Substance: CANDESARTAN
     Dosage: 16 MILLIGRAM DAILY;  1?0?0?0
  3. PANTOPRAZOL [Concomitant]
     Active Substance: PANTOPRAZOLE SODIUM
     Dosage: 40 MILLIGRAM DAILY; 1?0?0?0
  4. FLUOROURACIL. [Suspect]
     Active Substance: FLUOROURACIL
     Dosage: NK MG, LAST 27?JUL?2020
     Route: 065
  5. APIXABAN [Concomitant]
     Active Substance: APIXABAN
     Dosage: 5 MILLIGRAM DAILY;  1?0?1?0
  6. IRINOTECAN [Suspect]
     Active Substance: IRINOTECAN
     Dosage: NK MG, LAST 27?JUL?2020
     Route: 065
  7. TORASEMID [Concomitant]
     Active Substance: TORSEMIDE
     Dosage: 5 MILLIGRAM DAILY;  1?1?0?0
  8. KALIUMCHLORID [Concomitant]
     Active Substance: POTASSIUM CHLORIDE
     Dosage: 2 DOSAGE FORMS DAILY; 600 MG, 2?0?0?0,
  9. FOLINSAURE [Suspect]
     Active Substance: LEUCOVORIN
     Dosage: NK MG, LAST 27?JUL?2020
     Route: 065

REACTIONS (8)
  - Abdominal pain [Unknown]
  - Acute abdomen [Unknown]
  - Flatulence [Unknown]
  - General physical health deterioration [Unknown]
  - Nausea [Unknown]
  - Haematochezia [Unknown]
  - Diarrhoea [Unknown]
  - Fatigue [Unknown]
